FAERS Safety Report 21180253 (Version 6)
Quarter: 2023Q2

REPORT INFORMATION
  Report Type: Report from Study
  Country: DE (occurrence: None)
  Receive Date: 20220806
  Receipt Date: 20230419
  Transmission Date: 20230722
  Serious: Yes (Hospitalization)
  Sender: FDA-Public Use
  Company Number: DE-ROCHE-3153767

PATIENT
  Age: 58 Year
  Sex: Female
  Weight: 96 kg

DRUGS (35)
  1. ATEZOLIZUMAB [Suspect]
     Active Substance: ATEZOLIZUMAB
     Indication: Triple negative breast cancer
     Dosage: ON 31/MAY/2022, 28/JUN/2022, 19/JUL/2022, SHE RECEIVED LAST DOSE OF ATEZOLIZUMAB PRIOR TO ADVERSE EV
     Route: 042
     Dates: start: 20220329
  2. PACLITAXEL [Suspect]
     Active Substance: PACLITAXEL
     Indication: Triple negative breast cancer
     Dosage: ON 14/JUN/2022, SHE RECEIVED LAST DOSE OF PACLITAXEL PRIOR TO ADVERSE EVENT.
     Route: 042
     Dates: start: 20220329
  3. CARBOPLATIN [Suspect]
     Active Substance: CARBOPLATIN
     Indication: Triple negative breast cancer
     Dosage: ON 14/JUN/2022, SHE RECEIVED LAST DOSE OF CARBOPLATIN PRIOR TO ADVERSE EVENT.
     Route: 042
     Dates: start: 20220329
  4. EPIRUBICIN [Suspect]
     Active Substance: EPIRUBICIN
     Indication: Triple negative breast cancer
     Dosage: ON 19/JUL/2022, SHE RECEIVED LAST DOSE (153 MG) OF EPIRUBICIN.
     Route: 042
     Dates: start: 20220628
  5. CYCLOPHOSPHAMIDE [Suspect]
     Active Substance: CYCLOPHOSPHAMIDE
     Indication: Triple negative breast cancer
     Dosage: ON 19/JUL/2022, SHE RECEIVED LAST DOSE (1020 MG) OF CYCLOPHOSPHAMIDE.
     Route: 042
     Dates: start: 20220628
  6. CHLORTHALIDONE [Concomitant]
     Active Substance: CHLORTHALIDONE
     Dates: start: 2012
  7. VERAPAMIL [Concomitant]
     Active Substance: VERAPAMIL HYDROCHLORIDE
     Dates: start: 2012
  8. PREGABALIN [Concomitant]
     Active Substance: PREGABALIN
     Dates: start: 201811
  9. PREGABALIN [Concomitant]
     Active Substance: PREGABALIN
     Dates: start: 201811
  10. METAMIZOLE [Concomitant]
     Active Substance: METAMIZOLE
     Dosage: 30 DROPS
     Dates: start: 201811
  11. LEVOTHYROXINE [Concomitant]
     Active Substance: LEVOTHYROXINE
     Dates: start: 2012
  12. IBUPROFEN [Concomitant]
     Active Substance: IBUPROFEN
     Dates: start: 201811
  13. ATORVASTATIN [Concomitant]
     Active Substance: ATORVASTATIN
     Dates: start: 2018
  14. OMEPRAZOLE [Concomitant]
     Active Substance: OMEPRAZOLE
     Dates: start: 2018
  15. ALLOPURINOL [Concomitant]
     Active Substance: ALLOPURINOL
     Dates: start: 2018
  16. DEXAMETHASONE [Concomitant]
     Active Substance: DEXAMETHASONE
     Dates: start: 20220329, end: 20220830
  17. DIMETHINDENE MALEATE [Concomitant]
     Active Substance: DIMETHINDENE MALEATE
     Dosage: 1 AMP.
     Dates: start: 20220329, end: 20220614
  18. SODIUM CHLORIDE [Concomitant]
     Active Substance: SODIUM CHLORIDE
     Dates: start: 20220329, end: 20220614
  19. PALONOSETRON [Concomitant]
     Active Substance: PALONOSETRON
     Dosage: 1 AMP
     Dates: start: 20220329
  20. APREPITANT [Concomitant]
     Active Substance: APREPITANT
     Dosage: 125/80/80 MG
     Dates: start: 20220329, end: 20220617
  21. LACTULOSE [Concomitant]
     Active Substance: LACTULOSE
     Dates: start: 20220402, end: 20220920
  22. AMOXICILLIN [Concomitant]
     Active Substance: AMOXICILLIN
     Dates: start: 20220428, end: 2022
  23. ALBUTEROL [Concomitant]
     Active Substance: ALBUTEROL
     Dates: start: 20220603
  24. FOSTER [Concomitant]
     Active Substance: BECLOMETHASONE\FORMOTEROL
     Dates: start: 20220603, end: 20230320
  25. FERROUS GLYCINE SULFATE [Concomitant]
     Active Substance: FERROUS GLYCINE SULFATE
     Dates: start: 20220531, end: 20220920
  26. FERROUS GLYCINE SULFATE [Concomitant]
     Active Substance: FERROUS GLYCINE SULFATE
     Dates: start: 20220726, end: 20220820
  27. HUMAN RED BLOOD CELL [Concomitant]
     Active Substance: HUMAN RED BLOOD CELL
     Dosage: 2 UNK
     Dates: start: 20220622, end: 20220622
  28. MESNA [Concomitant]
     Active Substance: MESNA
     Dates: start: 20220628, end: 20220830
  29. FULPHILA [Concomitant]
     Active Substance: PEGFILGRASTIM-JMDB
     Dosage: 1 UNK
     Dates: start: 20220628
  30. JONOSTERIL [Concomitant]
     Dates: start: 20220628
  31. DULOXETINE [Concomitant]
     Active Substance: DULOXETINE
     Dates: start: 20220713
  32. OPIPRAMOL [Concomitant]
     Active Substance: OPIPRAMOL
     Dates: start: 20220713, end: 20230320
  33. MIRTAZAPINE [Concomitant]
     Active Substance: MIRTAZAPINE
     Dates: start: 20220713
  34. POTASSIUM CHLORIDE [Concomitant]
     Active Substance: POTASSIUM CHLORIDE
     Dates: start: 20220726
  35. PALONOSETRON [Concomitant]
     Active Substance: PALONOSETRON
     Dosage: 1AMP
     Dates: start: 20220329, end: 20220830

REACTIONS (1)
  - General physical health deterioration [Recovered/Resolved]

NARRATIVE: CASE EVENT DATE: 20220706
